FAERS Safety Report 18990277 (Version 2)
Quarter: 2022Q4

REPORT INFORMATION
  Report Type: Spontaneous
  Country: DE (occurrence: DE)
  Receive Date: 20210310
  Receipt Date: 20221022
  Transmission Date: 20230112
  Serious: Yes (Hospitalization)
  Sender: FDA-Public Use
  Company Number: DE-ADRED-06214-01

PATIENT
  Age: 56 Year
  Sex: Female

DRUGS (3)
  1. CEFUROXIME [Suspect]
     Active Substance: CEFUROXIME
     Indication: Product used for unknown indication
     Dosage: 500 MILLIGRAM (1-0-1-0)
     Route: 048
  2. BISOPROLOL [Concomitant]
     Active Substance: BISOPROLOL
     Indication: Product used for unknown indication
     Dosage: 2.5 MILLIGRAM (0.5-0-0-0)
     Route: 048
  3. ATORVASTATIN [Concomitant]
     Active Substance: ATORVASTATIN
     Indication: Product used for unknown indication
     Dosage: 20 MILLIGRAM ( 0-0-1-0)
     Route: 048

REACTIONS (5)
  - General physical health deterioration [Unknown]
  - Musculoskeletal pain [Unknown]
  - Flank pain [Unknown]
  - Pyrexia [Unknown]
  - Diarrhoea [Unknown]
